FAERS Safety Report 5205544-0 (Version None)
Quarter: 2006Q4

REPORT INFORMATION
  Report Type: 
  Country: None (occurrence: None)
  Receive Date: 20061027
  Receipt Date: 20060707
  Transmission Date: 20070319
  Serious: No
  Sender: FDA-Public Use
  Company Number: 200615685US

PATIENT
  Age: 62 Year
  Sex: Female
  Weight: 70.45 kg

DRUGS (1)
  1. KETEK [Suspect]
     Indication: RESPIRATORY TRACT INFECTION
     Dosage: 400 MG QD PO
     Route: 048
     Dates: start: 20060613, end: 20060625

REACTIONS (4)
  - NAUSEA [None]
  - RENAL PAIN [None]
  - RESPIRATORY TRACT INFECTION [None]
  - VOMITING [None]
